FAERS Safety Report 16268269 (Version 1)
Quarter: 2019Q2

REPORT INFORMATION
  Report Type: Spontaneous
  Country: DK (occurrence: DK)
  Receive Date: 20190503
  Receipt Date: 20190503
  Transmission Date: 20190711
  Serious: Yes (Hospitalization)
  Sender: FDA-Public Use
  Company Number: DK-ROCHE-2307218

PATIENT
  Age: 65 Year
  Sex: Female

DRUGS (4)
  1. BONDRONAT [IBANDRONATE SODIUM] [Suspect]
     Active Substance: IBANDRONATE SODIUM
     Indication: METASTASES TO BONE
     Route: 048
     Dates: start: 2008, end: 20180411
  2. LETROZOLE. [Concomitant]
     Active Substance: LETROZOLE
     Indication: BREAST CANCER
     Route: 048
     Dates: start: 20150121
  3. BUDESONIDE;FORMOTEROL [Concomitant]
     Indication: ASTHMA
     Dosage: STYRKE: 9+320 MIKROGRAM/DOSIS
     Route: 055
     Dates: start: 20130912
  4. AMLODIPINE [Concomitant]
     Active Substance: AMLODIPINE BESYLATE
     Indication: BLOOD PRESSURE ABNORMAL
     Route: 048
     Dates: start: 20130912

REACTIONS (4)
  - Osteonecrosis of jaw [Not Recovered/Not Resolved]
  - Secretion discharge [Not Recovered/Not Resolved]
  - Impaired healing [Not Recovered/Not Resolved]
  - Sequestrectomy [Recovering/Resolving]

NARRATIVE: CASE EVENT DATE: 2017
